FAERS Safety Report 14936901 (Version 2)
Quarter: 2018Q2

REPORT INFORMATION
  Report Type: Spontaneous
  Country: US (occurrence: US)
  Receive Date: 20180525
  Receipt Date: 20180531
  Transmission Date: 20180711
  Serious: Yes (Hospitalization, Other)
  Sender: FDA-Public Use
  Company Number: US-ROCHE-2126850

PATIENT
  Age: 74 Year
  Sex: Male

DRUGS (1)
  1. TECENTRIQ [Suspect]
     Active Substance: ATEZOLIZUMAB
     Indication: LUNG CARCINOMA CELL TYPE UNSPECIFIED STAGE IV
     Route: 065
     Dates: start: 20180410

REACTIONS (31)
  - Hypothyroidism [Unknown]
  - Alanine aminotransferase increased [Unknown]
  - Cough [Not Recovered/Not Resolved]
  - Diarrhoea [Unknown]
  - Pneumonia [Unknown]
  - Headache [Unknown]
  - Pleural effusion [Unknown]
  - Blood creatinine increased [Unknown]
  - Pneumomediastinum [Unknown]
  - Pericarditis [Not Recovered/Not Resolved]
  - Heart rate increased [Unknown]
  - Pyrexia [Unknown]
  - Sepsis [Not Recovered/Not Resolved]
  - Aspartate aminotransferase increased [Unknown]
  - Decreased appetite [Unknown]
  - Blood pressure increased [Unknown]
  - Multiple organ dysfunction syndrome [Unknown]
  - Eye swelling [Unknown]
  - Air embolism [Unknown]
  - Fatigue [Unknown]
  - Lung neoplasm malignant [Unknown]
  - Renal failure [Not Recovered/Not Resolved]
  - Coma [Not Recovered/Not Resolved]
  - Weight decreased [Unknown]
  - Colitis [Unknown]
  - Atrial fibrillation [Unknown]
  - Dyspnoea [Not Recovered/Not Resolved]
  - Pulmonary oedema [Unknown]
  - Swelling face [Unknown]
  - Pulmonary embolism [Unknown]
  - Pneumothorax [Unknown]

NARRATIVE: CASE EVENT DATE: 20180410
